FAERS Safety Report 7973466-8 (Version None)
Quarter: 2011Q4

REPORT INFORMATION
  Report Type: 
  Country: None (occurrence: None)
  Receive Date: 20111122
  Receipt Date: 20110706
  Transmission Date: 20120403
  Serious: No
  Sender: FDA-Public Use
  Company Number: PHHY2011US52551

PATIENT
  Age: 38 Year
  Sex: Female
  Weight: 77.6 kg

DRUGS (9)
  1. CALCIUM CARBONATE [Suspect]
  2. ZANAFLEX [Concomitant]
  3. ROBAXIN [Concomitant]
  4. AMANTADINE HCL [Concomitant]
  5. GILENYA [Suspect]
     Indication: MULTIPLE SCLEROSIS
     Dosage: 0.5 MG, QD, ORAL
     Route: 048
  6. LEXAPRO [Concomitant]
  7. LORTAB [Suspect]
  8. VITAMIN D [Concomitant]
  9. FAMPRIDINE (FAMPRIDINE) [Concomitant]

REACTIONS (10)
  - BACK PAIN [None]
  - COGNITIVE DISORDER [None]
  - VISUAL IMPAIRMENT [None]
  - NECK PAIN [None]
  - BALANCE DISORDER [None]
  - BLADDER DISCOMFORT [None]
  - PAIN IN EXTREMITY [None]
  - LHERMITTE'S SIGN [None]
  - URINARY INCONTINENCE [None]
  - TONGUE DISORDER [None]
